FAERS Safety Report 10262920 (Version 2)
Quarter: 2014Q2

REPORT INFORMATION
  Report Type: Report from Study
  Country: US (occurrence: US)
  Receive Date: 20140626
  Receipt Date: 20140626
  Transmission Date: 20141212
  Serious: Yes (Death)
  Sender: FDA-Public Use
  Company Number: US-MYLANLABS-2013S1022791

PATIENT
  Age: 53 Year
  Sex: Female

DRUGS (7)
  1. CLOZAPINE TABLETS [Suspect]
     Route: 048
     Dates: start: 2001, end: 2013
  2. CLOZAPINE TABLETS [Suspect]
     Route: 048
     Dates: start: 2001, end: 2013
  3. MEGACE [Concomitant]
     Indication: DECREASED APPETITE
     Route: 048
     Dates: start: 20130723
  4. FUROSEMIDE [Concomitant]
     Indication: FLUID RETENTION
     Route: 048
     Dates: start: 20130723
  5. HYDROCODONE [Concomitant]
     Indication: PAIN
     Dosage: 10/650MG
     Route: 048
     Dates: start: 201306
  6. DUONEB [Concomitant]
     Dosage: PRN
     Dates: start: 201305
  7. LEVAQUIN [Concomitant]
     Route: 048

REACTIONS (1)
  - Death [Fatal]
